FAERS Safety Report 21945523 (Version 1)
Quarter: 2023Q1

REPORT INFORMATION
  Report Type: Spontaneous
  Country: US (occurrence: US)
  Receive Date: 20230202
  Receipt Date: 20230202
  Transmission Date: 20230417
  Serious: No
  Sender: FDA-Public Use
  Company Number: US-MYLANLABS-2023M1008762

PATIENT
  Sex: Female
  Weight: 79.38 kg

DRUGS (1)
  1. EMSAM [Suspect]
     Active Substance: SELEGILINE
     Indication: Depression
     Dosage: 9 MILLIGRAM, QD (APPLIED ONCE A DAY)
     Route: 062

REACTIONS (8)
  - Application site haemorrhage [Unknown]
  - Application site inflammation [Unknown]
  - Hypersensitivity [Unknown]
  - Application site pain [Unknown]
  - Application site pruritus [Unknown]
  - Application site rash [Unknown]
  - Application site infection [Unknown]
  - Drug ineffective [Unknown]
